FAERS Safety Report 9520911 (Version 1)
Quarter: 2013Q1

REPORT INFORMATION
  Report Type: Spontaneous
  Country: US (occurrence: None)
  Receive Date: 20130305
  Receipt Date: 20130305
  Transmission Date: 20140127
  Serious: Yes (Other)
  Sender: FDA-Public Use
  Company Number: 163-21880-12011723

PATIENT
  Age: 79 Year
  Sex: Male

DRUGS (6)
  1. CITALOPRAM (CITALOPRAM) (TABLETS) [Concomitant]
  2. ASPIRIN (ACETYLSALICYLIC ACID) (CHEWABLE TABLET) [Concomitant]
  3. IMODIUM AD (LOPERAMIDE HYDROCHLORIDE) (TABLETES) [Concomitant]
  4. FLOMAX (TAMSULOSIN HYDROCHLORIDE) (CAPSULES) [Concomitant]
  5. METOPROLOL ER (METOPROLOL TARTRATE) (TABLETS) [Concomitant]
  6. REVLIMID [Suspect]
     Indication: MYELODYSPLASTIC SYNDROME
     Dosage: DAILY X 21 DAYS, OFF 7
     Route: 048
     Dates: start: 20100622, end: 20111128

REACTIONS (1)
  - Platelet count decreased [None]
